FAERS Safety Report 5200429-8 (Version None)
Quarter: 2006Q4

REPORT INFORMATION
  Report Type: 
  Country: None (occurrence: None)
  Receive Date: 20061016
  Receipt Date: 20060726
  Transmission Date: 20070319
  Serious: No
  Sender: FDA-Public Use
  Company Number: 2006SP002809

PATIENT
  Age: 79 Year
  Sex: Female
  Weight: 42.1845 kg

DRUGS (1)
  1. LUNESTA [Suspect]
     Indication: INSOMNIA
     Dosage: 3MG;HS;ORAL
     Route: 048
     Dates: start: 20060101, end: 20060725

REACTIONS (1)
  - FATIGUE [None]
